FAERS Safety Report 6901636-6 (Version None)
Quarter: 2010Q3

REPORT INFORMATION
  Report Type: 
  Country: None (occurrence: None)
  Receive Date: 20100803
  Receipt Date: 20080222
  Transmission Date: 20110219
  Serious: No
  Sender: FDA-Public Use
  Company Number: US-PFIZER INC-2008015114

PATIENT
  Sex: Female

DRUGS (2)
  1. LYRICA [Suspect]
  2. VIAGRA [Suspect]
     Indication: FEMALE SEXUAL DYSFUNCTION

REACTIONS (4)
  - CONSTIPATION [None]
  - DIARRHOEA [None]
  - HEADACHE [None]
  - INCORRECT DOSE ADMINISTERED [None]
